FAERS Safety Report 15340283 (Version 1)
Quarter: 2018Q3

REPORT INFORMATION
  Report Type: Spontaneous
  Country: CN (occurrence: CN)
  Receive Date: 20180831
  Receipt Date: 20180831
  Transmission Date: 20181010
  Serious: Yes (Hospitalization, Other)
  Sender: FDA-Public Use
  Company Number: CN-PFM-2018-10875

PATIENT

DRUGS (2)
  1. CISPLATIN. [Concomitant]
     Active Substance: CISPLATIN
     Indication: BREAST CANCER STAGE IV
     Dosage: 55 MG, D1?D2, Q21D
     Route: 042
     Dates: start: 20180518
  2. VINORELBINE TARTRATE. [Suspect]
     Active Substance: VINORELBINE TARTRATE
     Indication: BREAST CANCER STAGE IV
     Dosage: 40 MG, D1 D5
     Route: 042
     Dates: start: 20170518

REACTIONS (8)
  - Ileus paralytic [Recovered/Resolved]
  - Abdominal infection [Unknown]
  - Cardiac failure acute [Recovered/Resolved]
  - Electrolyte imbalance [Unknown]
  - Off label use [Unknown]
  - Bone marrow failure [Recovered/Resolved]
  - Pyrexia [Unknown]
  - Agranulocytosis [Recovered/Resolved]

NARRATIVE: CASE EVENT DATE: 20170527
